FAERS Safety Report 8495124-6 (Version None)
Quarter: 2012Q2

REPORT INFORMATION
  Report Type: 
  Country: None (occurrence: None)
  Receive Date: 20120627
  Receipt Date: 20120619
  Transmission Date: 20120825
  Serious: Yes (Hospitalization)
  Sender: FDA-Public Use
  Company Number: WAES 1001USA00594

PATIENT
  Age: 48 Year
  Sex: Female
  Weight: 53.978 kg

DRUGS (4)
  1. ISENTRESS [Suspect]
     Indication: HIV INFECTION
     Dosage: 400 MG/BID/PO
     Route: 048
     Dates: start: 20090915
  2. TRUVADA [Suspect]
     Indication: HIV INFECTION
     Dosage: 500 MG/DAILY/PO
     Route: 048
     Dates: start: 20090915
  3. TRAZODONE HYDROCHLORIDE [Concomitant]
  4. COCAINE [Concomitant]

REACTIONS (18)
  - BACK PAIN [None]
  - HYPOAESTHESIA [None]
  - PARAESTHESIA [None]
  - DEEP VEIN THROMBOSIS [None]
  - OSTEOARTHRITIS [None]
  - WHITE BLOOD CELL COUNT DECREASED [None]
  - IMMUNE RECONSTITUTION SYNDROME [None]
  - SPINAL OSTEOARTHRITIS [None]
  - MUSCULAR WEAKNESS [None]
  - HAEMOGLOBIN DECREASED [None]
  - UPPER RESPIRATORY TRACT INFECTION [None]
  - INTERVERTEBRAL DISC DISORDER [None]
  - FEMORAL NECK FRACTURE [None]
  - HIP FRACTURE [None]
  - DRUG ABUSE [None]
  - FAECAL INCONTINENCE [None]
  - URINARY TRACT INFECTION [None]
  - STRESS FRACTURE [None]
